FAERS Safety Report 25449726 (Version 1)
Quarter: 2025Q2

REPORT INFORMATION
  Report Type: Spontaneous
  Country: GB (occurrence: GB)
  Receive Date: 20250618
  Receipt Date: 20250618
  Transmission Date: 20250717
  Serious: Yes (Other)
  Sender: SANDOZ
  Company Number: None

PATIENT
  Age: 34 Year
  Sex: Female

DRUGS (1)
  1. FILGRASTIM [Suspect]
     Active Substance: FILGRASTIM
     Indication: Stem cell donor
     Route: 065
     Dates: start: 20250409, end: 20250414

REACTIONS (2)
  - Biopsy lymph gland [Unknown]
  - Squamous cell carcinoma [Not Recovered/Not Resolved]
